FAERS Safety Report 25964835 (Version 1)
Quarter: 2025Q4

REPORT INFORMATION
  Report Type: Spontaneous
  Country: EU (occurrence: EU)
  Receive Date: 20251027
  Receipt Date: 20251027
  Transmission Date: 20260118
  Serious: Yes (Other)
  Sender: PFIZER
  Company Number: None

PATIENT
  Age: 68 Year
  Sex: Male
  Weight: 82 kg

DRUGS (6)
  1. LINEZOLID [Suspect]
     Active Substance: LINEZOLID
     Indication: Endocarditis staphylococcal
     Dosage: UNK
     Route: 042
     Dates: start: 20250416, end: 20250417
  2. CLINDAMYCIN PHOSPHATE [Suspect]
     Active Substance: CLINDAMYCIN PHOSPHATE
     Indication: Endocarditis staphylococcal
     Dosage: 1800 MG, 1X/DAY
     Route: 042
     Dates: start: 20250415, end: 20250416
  3. MEROPENEM [Suspect]
     Active Substance: MEROPENEM
     Indication: Endocarditis staphylococcal
     Dosage: UNK
     Route: 042
     Dates: start: 20250416, end: 20250417
  4. RIFAMPIN [Suspect]
     Active Substance: RIFAMPIN
     Indication: Endocarditis staphylococcal
     Dosage: 900 MG, 1X/DAY
     Route: 042
     Dates: start: 20250417, end: 20250424
  5. CEFAZOLIN [Suspect]
     Active Substance: CEFAZOLIN
     Indication: Endocarditis staphylococcal
     Dosage: 6 G, 1X/DAY
     Route: 042
     Dates: start: 20250411, end: 20250424
  6. FOSFOMYCIN [Suspect]
     Active Substance: FOSFOMYCIN
     Indication: Endocarditis staphylococcal
     Dosage: 8 G, 1X/DAY
     Route: 042
     Dates: start: 20250411, end: 20250414

REACTIONS (2)
  - Drug reaction with eosinophilia and systemic symptoms [Recovered/Resolved]
  - Off label use [Unknown]

NARRATIVE: CASE EVENT DATE: 20250521
